FAERS Safety Report 13779177 (Version 1)
Quarter: 2017Q3

REPORT INFORMATION
  Report Type: Spontaneous
  Country: FR (occurrence: FR)
  Receive Date: 20170721
  Receipt Date: 20170721
  Transmission Date: 20171127
  Serious: Yes (Other)
  Sender: FDA-Public Use
  Company Number: FR-ROCHE-1965914

PATIENT
  Age: 78 Year
  Sex: Female

DRUGS (8)
  1. L-THYROXINE [Concomitant]
     Active Substance: LEVOTHYROXINE
  2. PACLITAXEL KABI [Suspect]
     Active Substance: PACLITAXEL
     Indication: BREAST CANCER
     Dosage: STRENGTH: 6MG/5ML
     Route: 041
     Dates: start: 20170407, end: 20170519
  3. TIANEPTINE [Concomitant]
     Active Substance: TIANEPTINE
  4. PAROXETINE. [Concomitant]
     Active Substance: PAROXETINE
  5. HERCEPTIN [Suspect]
     Active Substance: TRASTUZUMAB
     Indication: BREAST CANCER
     Route: 041
     Dates: start: 20170407
  6. PRAZEPAM [Concomitant]
     Active Substance: PRAZEPAM
  7. NUCTALON [Concomitant]
     Active Substance: ESTAZOLAM
  8. PROPRANOLOL [Concomitant]
     Active Substance: PROPRANOLOL HYDROCHLORIDE

REACTIONS (1)
  - Cystitis [Recovered/Resolved]

NARRATIVE: CASE EVENT DATE: 20170428
